FAERS Safety Report 25969906 (Version 2)
Quarter: 2025Q4

REPORT INFORMATION
  Report Type: Spontaneous
  Country: US (occurrence: None)
  Receive Date: 20251028
  Receipt Date: 20251215
  Transmission Date: 20260117
  Serious: No
  Sender: UCB
  Company Number: US-UCBSA-2025040163

PATIENT

DRUGS (1)
  1. BIMZELX [Suspect]
     Active Substance: BIMEKIZUMAB-BKZX
     Indication: Psoriasis
     Dosage: 320 MILLIGRAM, EV 4 WEEKS

REACTIONS (7)
  - Nail disorder [Unknown]
  - Bone disorder [Unknown]
  - Mental status changes [Unknown]
  - General physical condition abnormal [Unknown]
  - Psoriasis [Unknown]
  - Nail cuticle fissure [Unknown]
  - Pain [Unknown]
